FAERS Safety Report 11732913 (Version 1)
Quarter: 2015Q4

REPORT INFORMATION
  Report Type: Spontaneous
  Country: US (occurrence: US)
  Receive Date: 20151113
  Receipt Date: 20151113
  Transmission Date: 20160304
  Serious: No
  Sender: FDA-Public Use
  Company Number: US-009507513-1511USA005600

PATIENT
  Age: 18 Year
  Sex: Female
  Weight: 66.67 kg

DRUGS (1)
  1. NEXPLANON [Suspect]
     Active Substance: ETONOGESTREL
     Indication: CONTRACEPTION
     Dosage: UNK, 3 YEAR IMPLANT, IN LEFT ARM
     Route: 059
     Dates: start: 20151102

REACTIONS (1)
  - Implant site vesicles [Unknown]

NARRATIVE: CASE EVENT DATE: 20151103
